FAERS Safety Report 24787776 (Version 3)
Quarter: 2025Q1

REPORT INFORMATION
  Report Type: Report from Study
  Country: PK (occurrence: PK)
  Receive Date: 20241230
  Receipt Date: 20250128
  Transmission Date: 20250409
  Serious: Yes (Death, Other)
  Sender: ROCHE
  Company Number: PK-ROCHE-10000167719

PATIENT
  Age: 55 Year
  Sex: Female

DRUGS (6)
  1. HERCEPTIN [Suspect]
     Active Substance: TRASTUZUMAB
     Indication: Breast cancer
     Dosage: SOLUTION
     Route: 058
     Dates: start: 20240430, end: 20241206
  2. HERCEPTIN [Suspect]
     Active Substance: TRASTUZUMAB
     Route: 058
  3. HERCEPTIN [Suspect]
     Active Substance: TRASTUZUMAB
     Route: 058
  4. PERJETA [Suspect]
     Active Substance: PERTUZUMAB
     Indication: Breast cancer
     Route: 040
     Dates: start: 20240430, end: 20241206
  5. PERJETA [Suspect]
     Active Substance: PERTUZUMAB
     Route: 040
  6. PERJETA [Suspect]
     Active Substance: PERTUZUMAB
     Route: 040

REACTIONS (4)
  - Disease progression [Unknown]
  - Metastasis [Unknown]
  - Brain neoplasm [Unknown]
  - Breast cancer [Fatal]
